FAERS Safety Report 4624345-5 (Version None)
Quarter: 2005Q1

REPORT INFORMATION
  Report Type: 
  Country: None (occurrence: None)
  Receive Date: 20050330
  Receipt Date: 20050330
  Transmission Date: 20050727
  Serious: No
  Sender: FDA-Public Use
  Company Number: None

PATIENT
  Age: 47 Year
  Sex: Female

DRUGS (3)
  1. GABAPENTIN [Suspect]
     Dosage: 2 TID
     Dates: start: 20041210
  2. GABAPENTIN [Suspect]
     Dosage: 2 TID
     Dates: start: 20050111
  3. GABAPENTIN [Suspect]
     Dosage: 2 TID
     Dates: start: 20050223

REACTIONS (2)
  - FEELING ABNORMAL [None]
  - GASTRIC DISORDER [None]
